FAERS Safety Report 10194272 (Version 2)
Quarter: 2014Q2

REPORT INFORMATION
  Report Type: Spontaneous
  Country: US (occurrence: US)
  Receive Date: 20140526
  Receipt Date: 20140625
  Transmission Date: 20141212
  Serious: No
  Sender: FDA-Public Use
  Company Number: US-ASTRAZENECA-2014SE34445

PATIENT
  Age: 80 Year
  Sex: Male
  Weight: 79.4 kg

DRUGS (5)
  1. SYMBICORT [Suspect]
     Indication: ASTHMA
     Dosage: 80/4.5 MCG, 2 PUFFS BID
     Route: 055
     Dates: start: 20140425
  2. SYMBICORT [Suspect]
     Indication: ASTHMA
     Dosage: 80/4.5 MCG 1 PUFFS AT NIGHT
     Route: 055
  3. ALBUTEROL [Concomitant]
     Indication: SEASONAL ALLERGY
  4. BLOOD PRESSURE MEDICINES [Concomitant]
  5. MEDICINES FOR HIS TREMORS [Concomitant]
     Indication: TREMOR

REACTIONS (3)
  - Blood pressure abnormal [Unknown]
  - Intentional product misuse [Unknown]
  - Circumstance or information capable of leading to device use error [Unknown]
